FAERS Safety Report 4377043-X (Version None)
Quarter: 2004Q2

REPORT INFORMATION
  Report Type: 
  Country: None (occurrence: None)
  Receive Date: 20040614
  Receipt Date: 20040609
  Transmission Date: 20050107
  Serious: Yes (Death, Congenital Anomaly)
  Sender: FDA-Public Use
  Company Number: DE-GLAXOSMITHKLINE-D0043961B

PATIENT
  Sex: Female

DRUGS (1)
  1. ZOVIRAX [Suspect]

REACTIONS (3)
  - DRUG EXPOSURE DURING PREGNANCY [None]
  - SKELETON DYSPLASIA [None]
  - THANATOPHORIC DWARFISM [None]
